FAERS Safety Report 24591007 (Version 1)
Quarter: 2024Q4

REPORT INFORMATION
  Report Type: Spontaneous
  Country: US (occurrence: US)
  Receive Date: 20241107
  Receipt Date: 20241107
  Transmission Date: 20250114
  Serious: No
  Sender: ROCHE
  Company Number: US-ROCHE-10000124075

PATIENT
  Sex: Female

DRUGS (1)
  1. ACTEMRA [Suspect]
     Active Substance: TOCILIZUMAB
     Indication: Rheumatoid arthritis
     Dosage: STRENGTH- 162MG/0.9ML
     Route: 058
     Dates: start: 20230412

REACTIONS (3)
  - Diarrhoea [Unknown]
  - Injection site bruising [Unknown]
  - Weight increased [Unknown]
